FAERS Safety Report 10415544 (Version 1)
Quarter: 2014Q3

REPORT INFORMATION
  Report Type: Spontaneous
  Country: SG (occurrence: None)
  Receive Date: 20140826
  Receipt Date: 20140826
  Transmission Date: 20150326
  Serious: Yes (Hospitalization)
  Sender: FDA-Public Use
  Company Number: B1011835A

PATIENT
  Age: 82 Year
  Sex: Female

DRUGS (5)
  1. PAROXETINE HYDROCHLORIDE (FORMULATION UNKNOWN) (PAROXETINE HYDROCHLORIDE) [Suspect]
     Active Substance: PAROXETINE HYDROCHLORIDE
     Indication: DEPRESSION
     Dates: start: 20140613
  2. NIFEDIPINE. [Concomitant]
     Active Substance: NIFEDIPINE
  3. ZOPICLONE [Concomitant]
     Active Substance: ZOPICLONE
  4. EPOETIN BETA [Concomitant]
     Active Substance: ERYTHROPOIETIN
  5. ATORVASTATIN CALCIUM. [Concomitant]
     Active Substance: ATORVASTATIN CALCIUM

REACTIONS (2)
  - White blood cell count decreased [None]
  - Haemoglobin decreased [None]

NARRATIVE: CASE EVENT DATE: 20140627
